FAERS Safety Report 7381324-5 (Version None)
Quarter: 2011Q1

REPORT INFORMATION
  Report Type: 
  Country: None (occurrence: None)
  Receive Date: 20110321
  Receipt Date: 20110310
  Transmission Date: 20110831
  Serious: Yes (Disabling)
  Sender: FDA-Public Use
  Company Number: 2011SP011127

PATIENT
  Age: 12 Year
  Sex: Male
  Weight: 44.3 kg

DRUGS (4)
  1. MERCAPTOPURINE [Concomitant]
  2. DEXAMETHASONE [Suspect]
     Indication: LEUKAEMIA RECURRENT
     Dosage: 13 MG; BID;
     Dates: start: 20100217, end: 20100220
  3. COTRIM [Concomitant]
  4. METHOTREXATE [Concomitant]

REACTIONS (5)
  - VOCAL CORD PARALYSIS [None]
  - HYPERAESTHESIA [None]
  - ACUTE LYMPHOCYTIC LEUKAEMIA RECURRENT [None]
  - IVTH NERVE PARALYSIS [None]
  - VITH NERVE PARALYSIS [None]
